FAERS Safety Report 8008212-5 (Version None)
Quarter: 2011Q4

REPORT INFORMATION
  Report Type: 
  Country: None (occurrence: None)
  Receive Date: 20111227
  Receipt Date: 20111220
  Transmission Date: 20120403
  Serious: Yes (Hospitalization, Other)
  Sender: FDA-Public Use
  Company Number: JP-JNJFOC-20111207420

PATIENT
  Age: 41 Year
  Sex: Male

DRUGS (2)
  1. STELARA [Suspect]
     Indication: PRODUCT USED FOR UNKNOWN INDICATION
     Route: 058
     Dates: start: 20111202
  2. ISONIAZID [Suspect]
     Indication: PROPHYLAXIS
     Dates: end: 20111220

REACTIONS (2)
  - HEPATIC FUNCTION ABNORMAL [None]
  - DERMATITIS EXFOLIATIVE [None]
